FAERS Safety Report 4628177-3 (Version None)
Quarter: 2005Q2

REPORT INFORMATION
  Report Type: 
  Country: None (occurrence: None)
  Receive Date: 20050401
  Receipt Date: 20050329
  Transmission Date: 20051028
  Serious: Yes (Hospitalization)
  Sender: FDA-Public Use
  Company Number: DEWYE537229MAR05

PATIENT
  Age: 47 Year
  Sex: Female

DRUGS (4)
  1. VENLAFAXINE HCL [Suspect]
     Dosage: 12 TABLETS 75 MG EACH (OVERDOSE AMOUNT 900MG); ORAL
     Route: 048
     Dates: start: 20050328, end: 20050328
  2. ATOSIL (ISOPROMETHAZINE HYDROCHLORIDE, , 0) [Suspect]
     Dosage: 4 TABLETS (OVERDOSE AMOUNT 100MG); ORAL
     Route: 048
     Dates: start: 20050328, end: 20050328
  3. REMERGIL (MITRAZAPINE, , 0) [Suspect]
     Dosage: 45 TABLETS (OVERDOSE AMOUNT 675MG); ORAL
     Route: 048
     Dates: start: 20050328, end: 20050328
  4. ZOPICLONE (ZOPICLONE,  , 0) [Suspect]
     Dosage: 10 TABLETS (PVERDOSE AMOUNT 75MG); ORAL
     Route: 048
     Dates: start: 20050328, end: 20050328

REACTIONS (6)
  - AGITATION [None]
  - AREFLEXIA [None]
  - BLOOD PRESSURE INCREASED [None]
  - INTENTIONAL MISUSE [None]
  - SOPOR [None]
  - TACHYCARDIA [None]
